FAERS Safety Report 12081635 (Version 2)
Quarter: 2016Q1

REPORT INFORMATION
  Report Type: Spontaneous
  Country: US (occurrence: US)
  Receive Date: 20160216
  Receipt Date: 20160301
  Transmission Date: 20160526
  Serious: No
  Sender: FDA-Public Use
  Company Number: ALCN2016US001256

PATIENT
  Age: 53 Year
  Sex: Female

DRUGS (1)
  1. SYSTANE BALANCE [Suspect]
     Active Substance: PROPYLENE GLYCOL
     Indication: PRODUCT USED FOR UNKNOWN INDICATION
     Dosage: 1 GTT, PRN
     Route: 047
     Dates: start: 20160204, end: 20160210

REACTIONS (4)
  - Eye pain [Recovered/Resolved]
  - Eyelid irritation [Recovered/Resolved]
  - Eyelid rash [Recovered/Resolved]
  - Urticaria [Recovered/Resolved]

NARRATIVE: CASE EVENT DATE: 20160205
